FAERS Safety Report 4502884-5 (Version None)
Quarter: 2004Q4

REPORT INFORMATION
  Report Type: 
  Country: None (occurrence: None)
  Receive Date: 20041116
  Receipt Date: 20041116
  Transmission Date: 20050328
  Serious: Yes (Hospitalization)
  Sender: FDA-Public Use
  Company Number: None

PATIENT
  Sex: Male
  Weight: 85 kg

DRUGS (14)
  1. NATRECOR [Suspect]
     Indication: CARDIAC FAILURE CONGESTIVE
     Dosage: 0.01MCG/KG/MIN IV INFUS
     Route: 042
     Dates: start: 20040901
  2. PLACEBO [Suspect]
  3. COLACE [Concomitant]
  4. LOPRESSOR [Concomitant]
  5. SEREVENT [Concomitant]
  6. AEROBID [Concomitant]
  7. ASPIRIN [Concomitant]
  8. DIGOXIN [Concomitant]
  9. ZYLOPRIM [Concomitant]
  10. ALDACTONE [Concomitant]
  11. LASIX [Concomitant]
  12. ZOCOR [Concomitant]
  13. PRINIVIL [Concomitant]
  14. ATROVENT [Concomitant]

REACTIONS (1)
  - HYPOTENSION [None]
